FAERS Safety Report 4362507-5 (Version None)
Quarter: 2004Q2

REPORT INFORMATION
  Report Type: 
  Country: None (occurrence: None)
  Receive Date: 20040518
  Receipt Date: 20040507
  Transmission Date: 20050107
  Serious: Yes (Other)
  Sender: FDA-Public Use
  Company Number: US-JNJFOC-20040501377

PATIENT
  Age: 76 Year
  Sex: Male

DRUGS (17)
  1. INFLIXIMAB (INFLIXIMAB, RECOMBINANT) LYOPHILIZED POWDER [Suspect]
     Indication: RHEUMATOID ARTHRITIS
     Dosage: INTRAVENOUS
     Route: 042
     Dates: start: 20000321, end: 20020903
  2. ISOSORBIDE DINITRATE [Concomitant]
  3. TOPROL XL (METHOPROLOL SUCCINATE) [Concomitant]
  4. ALLOPURINOL [Concomitant]
  5. LEVOTHYROXINE SODIUM [Concomitant]
  6. PREDNISONE [Concomitant]
  7. PRAVACHOL [Concomitant]
  8. METHOTREXATE [Concomitant]
  9. FOLIC ACID [Concomitant]
  10. CARDURA [Concomitant]
  11. CELEBREX [Concomitant]
  12. ASPIRIN [Concomitant]
  13. COUMADIN [Concomitant]
  14. PROSCAR [Concomitant]
  15. NORVASC [Concomitant]
  16. VITAMIN E [Concomitant]
  17. MULTIVITAMIN (MULTIVITAMINS) [Concomitant]

REACTIONS (1)
  - SKIN CANCER [None]
